FAERS Safety Report 7872469-1 (Version None)
Quarter: 2011Q4

REPORT INFORMATION
  Report Type: 
  Country: None (occurrence: None)
  Receive Date: 20111030
  Receipt Date: 20110426
  Transmission Date: 20120403
  Serious: No
  Sender: FDA-Public Use
  Company Number: US-AMGEN-USASP2011021694

PATIENT
  Age: 63 Year
  Sex: Female
  Weight: 108.84 kg

DRUGS (6)
  1. ENBREL [Suspect]
     Indication: PRODUCT USED FOR UNKNOWN INDICATION
     Dosage: 50 MG, QWK
     Route: 058
  2. LEVOTHYROXINE SODIUM [Concomitant]
     Dosage: 25 A?G, UNK
  3. FOLIC ACID [Concomitant]
     Dosage: 200 A?G, UNK
  4. METHOTREXATE [Concomitant]
     Dosage: 2.5 MG, UNK
  5. TRAMADOL HCL [Concomitant]
     Dosage: 50 MG, UNK
  6. TYLENOL (CAPLET) [Concomitant]

REACTIONS (2)
  - INJECTION SITE REACTION [None]
  - SINUS HEADACHE [None]
